FAERS Safety Report 9380132 (Version 4)
Quarter: 2013Q3

REPORT INFORMATION
  Report Type: Spontaneous
  Country: DE (occurrence: None)
  Receive Date: 20130628
  Receipt Date: 20130912
  Transmission Date: 20140515
  Serious: Yes (Hospitalization, Other)
  Sender: FDA-Public Use
  Company Number: AUR-APL-2013-05249

PATIENT
  Age: 40 Year
  Sex: Male

DRUGS (5)
  1. RAMIPRIL [Suspect]
     Indication: PRODUCT USED FOR UNKNOWN INDICATION
     Dosage: (10 MG, 1 D), UNKNOWN
  2. OMEPRAZOLE [Concomitant]
  3. SIMVASTATIN [Concomitant]
  4. INSULIN DETEMIR [Concomitant]
  5. INSULIN LISPRO [Concomitant]

REACTIONS (8)
  - Jaundice [None]
  - Alanine aminotransferase increased [None]
  - Hepatotoxicity [None]
  - Pancreatitis chronic [None]
  - Condition aggravated [None]
  - Treatment noncompliance [None]
  - Hepatitis [None]
  - Drug-induced liver injury [None]
